FAERS Safety Report 10204617 (Version 1)
Quarter: 2014Q2

REPORT INFORMATION
  Report Type: Spontaneous
  Country: US (occurrence: None)
  Receive Date: 20140527
  Receipt Date: 20140527
  Transmission Date: 20141212
  Serious: No
  Sender: FDA-Public Use
  Company Number: None

PATIENT
  Age: 13 Year
  Sex: Male
  Weight: 52.16 kg

DRUGS (1)
  1. ZYRTEC 10MG MCNEIL CONSUMER HEALTHCARE [Suspect]
     Indication: SEASONAL ALLERGY
     Dates: start: 20140512, end: 20140517

REACTIONS (8)
  - Anger [None]
  - Irritability [None]
  - Anxiety [None]
  - Fear [None]
  - Depressed mood [None]
  - Personality change [None]
  - Suicidal ideation [None]
  - Somnolence [None]
